FAERS Safety Report 10484756 (Version 3)
Quarter: 2014Q4

REPORT INFORMATION
  Report Type: Report from Study
  Country: US (occurrence: US)
  Receive Date: 20140930
  Receipt Date: 20141107
  Transmission Date: 20150528
  Serious: Yes (Death)
  Sender: FDA-Public Use
  Company Number: US-EXELIXIS-CABO-14004311

PATIENT
  Age: 31 Year
  Sex: Female
  Weight: 48.53 kg

DRUGS (15)
  1. AMBIEN [Concomitant]
     Active Substance: ZOLPIDEM TARTRATE
  2. TYLENOL [Concomitant]
     Active Substance: ACETAMINOPHEN
  3. BIOTIN [Concomitant]
     Active Substance: BIOTIN
  4. VITAMIN C [Concomitant]
     Active Substance: ASCORBIC ACID
  5. LACTULOSE. [Concomitant]
     Active Substance: LACTULOSE
  6. UNSPECIFIED ANTIBIOTIC [Concomitant]
     Active Substance: UNSPECIFIED INGREDIENT
  7. CRANBERRY EXTRACT [Concomitant]
  8. VALIUM [Concomitant]
     Active Substance: DIAZEPAM
  9. DILAUDID [Concomitant]
     Active Substance: HYDROMORPHONE HYDROCHLORIDE
  10. AVASTIN [Concomitant]
     Active Substance: BEVACIZUMAB
  11. KEPPRA [Concomitant]
     Active Substance: LEVETIRACETAM
  12. DECADRON [Concomitant]
     Active Substance: DEXAMETHASONE
  13. TRAUMEEL [Concomitant]
  14. SENNA [Concomitant]
     Active Substance: SENNA LEAF\SENNOSIDES\SENNOSIDES A AND B
  15. CABOZANTINIB [Suspect]
     Active Substance: CABOZANTINIB
     Indication: BRAIN NEOPLASM MALIGNANT
     Dosage: 140 MG, QD
     Route: 048
     Dates: start: 20140414, end: 20140430

REACTIONS (3)
  - Infection [Unknown]
  - Off label use [Unknown]
  - Malignant neoplasm progression [Fatal]

NARRATIVE: CASE EVENT DATE: 20140828
